FAERS Safety Report 12009516 (Version 3)
Quarter: 2016Q3

REPORT INFORMATION
  Report Type: Spontaneous
  Country: US (occurrence: US)
  Receive Date: 20160205
  Receipt Date: 20160826
  Transmission Date: 20161109
  Serious: Yes (Death)
  Sender: FDA-Public Use
  Company Number: US-ROCHE-1706752

PATIENT
  Sex: Female

DRUGS (11)
  1. LOVASTATIN. [Concomitant]
     Active Substance: LOVASTATIN
  2. TEMAZEPAM. [Concomitant]
     Active Substance: TEMAZEPAM
  3. WARFARIN [Concomitant]
     Active Substance: WARFARIN
  4. DEXAMETHASONE. [Concomitant]
     Active Substance: DEXAMETHASONE
  5. EMEND [Concomitant]
     Active Substance: APREPITANT
  6. LETROZOLE. [Concomitant]
     Active Substance: LETROZOLE
  7. ATENOLOL. [Concomitant]
     Active Substance: ATENOLOL
  8. AVASTIN [Suspect]
     Active Substance: BEVACIZUMAB
     Indication: PRODUCT USED FOR UNKNOWN INDICATION
     Route: 042
     Dates: start: 20151027
  9. ISOSORBID MONONITRAT [Concomitant]
  10. CEPHALEXIN. [Concomitant]
     Active Substance: CEPHALEXIN
  11. GABAPENTIN. [Concomitant]
     Active Substance: GABAPENTIN

REACTIONS (1)
  - Death [Fatal]
